FAERS Safety Report 6768191-5 (Version None)
Quarter: 2010Q2

REPORT INFORMATION
  Report Type: 
  Country: None (occurrence: None)
  Receive Date: 20100610
  Receipt Date: 20100603
  Transmission Date: 20101027
  Serious: Yes (Other)
  Sender: FDA-Public Use
  Company Number: 100941

PATIENT
  Age: 5 Year
  Sex: Male

DRUGS (1)
  1. HALOPERIDOL DECANOATE [Suspect]
     Indication: BACK PAIN
     Dosage: 10MG/X THREE TIMES A DAY/ ORAL
     Route: 048

REACTIONS (6)
  - DRUG DISPENSING ERROR [None]
  - DYSKINESIA [None]
  - DYSTONIA [None]
  - INCORRECT DOSE ADMINISTERED [None]
  - MEDICATION ERROR [None]
  - WRONG DRUG ADMINISTERED [None]
